FAERS Safety Report 14017721 (Version 1)
Quarter: 2017Q3

REPORT INFORMATION
  Report Type: Spontaneous
  Country: US (occurrence: US)
  Receive Date: 20170927
  Receipt Date: 20170927
  Transmission Date: 20171128
  Serious: No
  Sender: FDA-Public Use
  Company Number: US-TEIKOKU PHARMA USA-TPU2017-00589

PATIENT
  Sex: Female
  Weight: 44.49 kg

DRUGS (14)
  1. DIAZEPAM. [Concomitant]
     Active Substance: DIAZEPAM
     Indication: ANXIETY DISORDER
     Dosage: 1/2 TO 1 PILL 3 TIMES A DAY AS NEEDED
     Route: 048
     Dates: start: 2014
  2. DIAZEPAM. [Concomitant]
     Active Substance: DIAZEPAM
     Indication: SLEEP DISORDER
  3. MARINOL [Concomitant]
     Active Substance: DRONABINOL
     Indication: APPETITE DISORDER
     Dates: start: 2015
  4. OXYCONTIN [Concomitant]
     Active Substance: OXYCODONE HYDROCHLORIDE
     Indication: PAIN
     Dates: start: 2015
  5. SEROQUEL [Concomitant]
     Active Substance: QUETIAPINE FUMARATE
  6. FAMOTIDINE. [Concomitant]
     Active Substance: FAMOTIDINE
     Indication: DYSPEPSIA
     Dates: start: 2016
  7. VENTOLIN [Concomitant]
     Active Substance: ALBUTEROL SULFATE
     Indication: ASTHMA
     Dosage: TWO PUFFS EVERY 6 HOURS AS NEEDED
  8. OXYCODONE [Concomitant]
     Active Substance: OXYCODONE
     Indication: PAIN
     Dosage: 1-2 TABLETS AS NEEDED TWICE A DAY
     Dates: start: 2014
  9. MOVANTIK [Concomitant]
     Active Substance: NALOXEGOL OXALATE
     Indication: CONSTIPATION
     Dates: start: 2017
  10. LIDOCAINE PATCH [Suspect]
     Active Substance: LIDOCAINE
     Indication: EHLERS-DANLOS SYNDROME
     Dosage: 1-3 PATCHES A DAY, UP TO 12 HOURS
     Route: 061
  11. CARISOPRODOL. [Concomitant]
     Active Substance: CARISOPRODOL
     Indication: MUSCLE RELAXANT THERAPY
  12. GABAPENTIN. [Concomitant]
     Active Substance: GABAPENTIN
     Indication: NEURALGIA
     Dates: start: 2014
  13. DOCUSATE SODIUM. [Concomitant]
     Active Substance: DOCUSATE SODIUM
     Indication: FAECES HARD
  14. MONTELUKAST SODIUM. [Concomitant]
     Active Substance: MONTELUKAST SODIUM
     Indication: ASTHMA
     Dates: start: 2015

REACTIONS (4)
  - Joint dislocation [Unknown]
  - Weight decreased [Not Recovered/Not Resolved]
  - Muscle mass [Not Recovered/Not Resolved]
  - Decreased appetite [Not Recovered/Not Resolved]
